FAERS Safety Report 9281244 (Version 1)
Quarter: 2013Q2

REPORT INFORMATION
  Report Type: Spontaneous
  Country: US (occurrence: None)
  Receive Date: 20130508
  Receipt Date: 20130508
  Transmission Date: 20140414
  Serious: Yes (Life-Threatening, Hospitalization)
  Sender: FDA-Public Use
  Company Number: None

PATIENT
  Age: 38 Year
  Sex: Female
  Weight: 83.01 kg

DRUGS (1)
  1. CLEOCIN [Suspect]
     Indication: BACTERIAL INFECTION
     Dosage: 100 1 OVULE. BEDTIME.
     Route: 067
     Dates: start: 20130423, end: 20130425

REACTIONS (3)
  - Exposure during pregnancy [None]
  - Preterm premature rupture of membranes [None]
  - Premature labour [None]
